FAERS Safety Report 8190170-4 (Version None)
Quarter: 2012Q1

REPORT INFORMATION
  Report Type: 
  Country: None (occurrence: None)
  Receive Date: 20120307
  Receipt Date: 20120305
  Transmission Date: 20120608
  Serious: Yes (Other)
  Sender: FDA-Public Use
  Company Number: US-BAYER-2012-021574

PATIENT
  Age: 63 Year
  Sex: Female

DRUGS (1)
  1. INTERFERON BETA-1B [Suspect]
     Indication: MULTIPLE SCLEROSIS
     Dosage: UNK
     Dates: start: 19991124

REACTIONS (3)
  - WHITE BLOOD CELL COUNT INCREASED [None]
  - RED BLOOD CELL COUNT INCREASED [None]
  - HEART RATE IRREGULAR [None]
